FAERS Safety Report 9186750 (Version 2)
Quarter: 2013Q2

REPORT INFORMATION
  Report Type: Spontaneous
  Country: CN (occurrence: CN)
  Receive Date: 20130325
  Receipt Date: 20130422
  Transmission Date: 20140414
  Serious: Yes (Death)
  Sender: FDA-Public Use
  Company Number: CN-NOVOPROD-373432

PATIENT
  Age: 70 Year
  Sex: Female

DRUGS (3)
  1. NOVOMIX 30 FLEXPEN [Suspect]
     Indication: TYPE 2 DIABETES MELLITUS
     Dosage: 15 U, BID
     Route: 058
     Dates: start: 200907
  2. NOVOMIX 30 FLEXPEN [Suspect]
     Dosage: 15 U, BID
     Route: 058
     Dates: start: 20121211, end: 20121212
  3. ISOSORBIDE DINITRATE [Concomitant]
     Indication: EXTRASYSTOLES
     Dosage: UNK
     Route: 048

REACTIONS (2)
  - Sudden death [Fatal]
  - Product reconstitution issue [Unknown]
